FAERS Safety Report 7170461-6 (Version None)
Quarter: 2010Q4

REPORT INFORMATION
  Report Type: 
  Country: None (occurrence: None)
  Receive Date: 20101217
  Receipt Date: 20101213
  Transmission Date: 20110411
  Serious: Yes (Other)
  Sender: FDA-Public Use
  Company Number: CA-ROCHE-748348

PATIENT
  Age: 85 Year
  Sex: Female
  Weight: 75 kg

DRUGS (14)
  1. TAMIFLU [Suspect]
     Route: 048
  2. WARFARIN SODIUM [Suspect]
     Route: 065
  3. WARFARIN SODIUM [Suspect]
     Dosage: DOSE INCREASED
     Route: 065
  4. WARFARIN SODIUM [Suspect]
     Route: 065
  5. RISPERIDONE [Concomitant]
     Dosage: FORM: NOT SPECIFIED
     Route: 048
  6. QUINAPRIL [Concomitant]
     Route: 048
  7. OXAZEPAM [Concomitant]
     Route: 048
  8. LOVASTATIN [Concomitant]
     Route: 048
  9. LORAZEPAM [Concomitant]
     Route: 060
  10. LEVOTHYROXINE [Concomitant]
     Route: 048
  11. LACTULOSE [Concomitant]
     Route: 048
  12. BUPROPION [Concomitant]
     Dosage: EXTENDED RELEASE
     Route: 048
  13. ATENOLOL [Concomitant]
     Dosage: DRUG: ATENOLOL TABLETS, BP
     Route: 048
  14. ACETAMINOPHEN [Concomitant]
     Route: 048

REACTIONS (1)
  - INTERNATIONAL NORMALISED RATIO INCREASED [None]
